FAERS Safety Report 7142769-1 (Version None)
Quarter: 2010Q4

REPORT INFORMATION
  Report Type: 
  Country: None (occurrence: None)
  Receive Date: 20101207
  Receipt Date: 20101202
  Transmission Date: 20110411
  Serious: Yes (Life-Threatening)
  Sender: FDA-Public Use
  Company Number: CA-ABBOTT-10P-028-0689325-00

PATIENT
  Age: 43 Year
  Sex: Male
  Weight: 68.1 kg

DRUGS (1)
  1. BIAXIN XL [Suspect]
     Indication: PRODUCT USED FOR UNKNOWN INDICATION

REACTIONS (1)
  - HEPATITIS [None]
